FAERS Safety Report 8322593-4 (Version None)
Quarter: 2012Q2

REPORT INFORMATION
  Report Type: 
  Country: None (occurrence: None)
  Receive Date: 20120430
  Receipt Date: 20081113
  Transmission Date: 20120825
  Serious: Yes (Hospitalization)
  Sender: FDA-Public Use
  Company Number: US-TEVA-US025037

PATIENT
  Age: 19 Year
  Sex: Male

DRUGS (1)
  1. MODAFINIL [Suspect]
     Dosage: 6 GRAM;
     Route: 048

REACTIONS (4)
  - TOXICITY TO VARIOUS AGENTS [None]
  - INTENTIONAL OVERDOSE [None]
  - BLOOD CREATINE PHOSPHOKINASE INCREASED [None]
  - DELIRIUM [None]
